FAERS Safety Report 8573870-3 (Version None)
Quarter: 2012Q3

REPORT INFORMATION
  Report Type: 
  Country: None (occurrence: None)
  Receive Date: 20120806
  Receipt Date: 20120206
  Transmission Date: 20120928
  Serious: No
  Sender: FDA-Public Use
  Company Number: US-GLAXOSMITHKLINE-A0964801A

PATIENT
  Age: 13 Year
  Sex: Female

DRUGS (2)
  1. PRILOSEC [Concomitant]
  2. FLUTICASONE PROPIONATE [Suspect]
     Indication: ASTHMA
     Dosage: 2PUFF TWICE PER DAY
     Route: 055
     Dates: start: 20100206

REACTIONS (2)
  - SPINAL PAIN [None]
  - PAIN IN EXTREMITY [None]
